APPROVED DRUG PRODUCT: PHENTERMINE HYDROCHLORIDE
Active Ingredient: PHENTERMINE HYDROCHLORIDE
Strength: 37.5MG
Dosage Form/Route: TABLET;ORAL
Application: A088596 | Product #001
Applicant: CHARTWELL RX SCIENCES LLC
Approved: Apr 4, 1984 | RLD: No | RS: No | Type: DISCN